FAERS Safety Report 18224222 (Version 2)
Quarter: 2020Q4

REPORT INFORMATION
  Report Type: Report from Study
  Country: US (occurrence: US)
  Receive Date: 20200902
  Receipt Date: 20201012
  Transmission Date: 20210113
  Serious: Yes (Other)
  Sender: FDA-Public Use
  Company Number: NVSC2020US234767

PATIENT
  Age: 68 Year
  Sex: Female

DRUGS (1)
  1. COSENTYX [Suspect]
     Active Substance: SECUKINUMAB
     Indication: PSORIASIS
     Dosage: 300 MG (ONCE WEEKLY FOR 5 WEEKS, THEN ONCE)
     Route: 058
     Dates: start: 20200731

REACTIONS (8)
  - Pruritus [Recovering/Resolving]
  - Arthralgia [Unknown]
  - Psoriatic arthropathy [Unknown]
  - Insomnia [Unknown]
  - Feeling jittery [Unknown]
  - Eating disorder [Unknown]
  - Blood glucose increased [Unknown]
  - Myalgia [Unknown]

NARRATIVE: CASE EVENT DATE: 20200824
